FAERS Safety Report 11211930 (Version 1)
Quarter: 2015Q2

REPORT INFORMATION
  Report Type: Spontaneous
  Country: US (occurrence: US)
  Receive Date: 20150623
  Receipt Date: 20150623
  Transmission Date: 20150821
  Serious: No
  Sender: FDA-Public Use
  Company Number: US-MYLANLABS-2015M1003020

PATIENT
  Sex: Female

DRUGS (5)
  1. BUPROPION HYDROCHLORIDE EXTENDED-RELEASE TABLETS, USP (SR) [Suspect]
     Active Substance: BUPROPION HYDROCHLORIDE
     Dosage: 150 MG, BID
     Route: 048
     Dates: start: 20150106, end: 201501
  2. VIIBRYD [Concomitant]
     Active Substance: VILAZODONE HYDROCHLORIDE
     Dosage: 40 MG, UNK
  3. BUPROPION HYDROCHLORIDE EXTENDED-RELEASE TABLETS, USP (SR) [Suspect]
     Active Substance: BUPROPION HYDROCHLORIDE
     Dosage: 75 MG, BID
     Route: 048
     Dates: start: 201501
  4. BUPROPION HYDROCHLORIDE EXTENDED-RELEASE TABLETS, USP (SR) [Suspect]
     Active Substance: BUPROPION HYDROCHLORIDE
     Dosage: 150 MG, QD
     Route: 048
     Dates: start: 20150102, end: 20150105
  5. LOVASTATIN. [Concomitant]
     Active Substance: LOVASTATIN
     Dosage: UNK

REACTIONS (2)
  - Tremor [Not Recovered/Not Resolved]
  - Wrong technique in drug usage process [Not Recovered/Not Resolved]

NARRATIVE: CASE EVENT DATE: 201501
